FAERS Safety Report 5098784-5 (Version None)
Quarter: 2006Q3

REPORT INFORMATION
  Report Type: 
  Country: None (occurrence: None)
  Receive Date: 20060907
  Receipt Date: 20060816
  Transmission Date: 20061208
  Serious: Yes (Hospitalization)
  Sender: FDA-Public Use
  Company Number: US-AMGEN-US190100

PATIENT
  Sex: Male

DRUGS (2)
  1. ARANESP [Suspect]
     Indication: ANAEMIA
     Route: 065
  2. FOLIC ACID [Concomitant]

REACTIONS (2)
  - APLASIA PURE RED CELL [None]
  - HAEMOGLOBIN DECREASED [None]
